FAERS Safety Report 16895004 (Version 1)
Quarter: 2019Q4

REPORT INFORMATION
  Report Type: Spontaneous
  Country: US (occurrence: US)
  Receive Date: 20190813
  Receipt Date: 20190813
  Transmission Date: 20200122
  Serious: Yes (Other)
  Sender: FDA-Public Use
  Company Number: None

PATIENT
  Age: 72 Year
  Sex: Female
  Weight: 66.5 kg

DRUGS (16)
  1. ACYEIOVIR [Concomitant]
  2. DIPHENHYDRAMINE. [Concomitant]
     Active Substance: DIPHENHYDRAMINE
  3. HYDRAZINE [Concomitant]
     Active Substance: HYDRAZINE SULFATE
  4. TISAGENLECLEUCEL. [Suspect]
     Active Substance: TISAGENLECLEUCEL
     Indication: DIFFUSE LARGE B-CELL LYMPHOMA
     Dates: start: 20190808
  5. PANTOPRAZOLE 8/12/19 + 8/13/19 [Concomitant]
  6. GABAPENTIN. [Concomitant]
     Active Substance: GABAPENTIN
  7. LORAZEPAM. [Concomitant]
     Active Substance: LORAZEPAM
  8. POTASSIUM CHLORIDE. [Concomitant]
     Active Substance: POTASSIUM CHLORIDE
  9. NOXEPINEPHINE [Concomitant]
  10. CALCIUM GLUCONADE [Concomitant]
  11. MAGNESIUM [Concomitant]
     Active Substance: MAGNESIUM
  12. MEROPENEN [Concomitant]
  13. MICAFANGIN [Concomitant]
  14. LEVOFLOXIN [Concomitant]
     Active Substance: LEVOFLOXACIN
  15. ACETAMINOPHEN. [Concomitant]
     Active Substance: ACETAMINOPHEN
  16. TOCILIZAMAB [Concomitant]

REACTIONS (1)
  - Cytokine release syndrome [None]

NARRATIVE: CASE EVENT DATE: 20190812
